FAERS Safety Report 16091377 (Version 1)
Quarter: 2019Q1

REPORT INFORMATION
  Report Type: Spontaneous
  Country: GB (occurrence: GB)
  Receive Date: 20190319
  Receipt Date: 20190319
  Transmission Date: 20190418
  Serious: Yes (Hospitalization, Other)
  Sender: FDA-Public Use
  Company Number: GB-MYLANLABS-2019M1024714

PATIENT
  Age: 53 Year
  Sex: Female

DRUGS (4)
  1. CLOPIXOL                           /00876702/ [Concomitant]
     Active Substance: ZUCLOPENTHIXOL ACETATE
     Dosage: 400 MILLIGRAM, EVERY 4 WEEK
     Route: 030
     Dates: end: 20180605
  2. DIAZEPAM. [Concomitant]
     Active Substance: DIAZEPAM
     Dosage: UNK
     Route: 033
     Dates: start: 20180821
  3. ARIPIPRAZOLE. [Suspect]
     Active Substance: ARIPIPRAZOLE
     Indication: SCHIZOPHRENIA
     Dosage: 10 MILLIGRAM
     Route: 048
     Dates: start: 20180501, end: 20180821
  4. ZOPICLONE [Concomitant]
     Active Substance: ZOPICLONE
     Dosage: UNK
     Route: 033
     Dates: start: 20180823

REACTIONS (3)
  - Pain in extremity [Unknown]
  - Muscular weakness [Unknown]
  - Acute kidney injury [Recovering/Resolving]

NARRATIVE: CASE EVENT DATE: 20180817
